FAERS Safety Report 9779756 (Version 2)
Quarter: 2014Q1

REPORT INFORMATION
  Report Type: Spontaneous
  Country: US (occurrence: US)
  Receive Date: 20131223
  Receipt Date: 20140317
  Transmission Date: 20141002
  Serious: Yes (Death)
  Sender: FDA-Public Use
  Company Number: US-GLAXOSMITHKLINE-A1054437A

PATIENT
  Age: 82 Year
  Sex: Male

DRUGS (1)
  1. VOTRIENT [Suspect]
     Indication: RENAL CELL CARCINOMA
     Dosage: 200MG UNKNOWN
     Route: 065
     Dates: start: 20130515, end: 20130901

REACTIONS (5)
  - Renal cell carcinoma [Fatal]
  - Cardiac failure [Fatal]
  - Asthenia [Unknown]
  - Sedation [Unknown]
  - Confusional state [Unknown]
